FAERS Safety Report 5204824-2 (Version None)
Quarter: 2007Q1

REPORT INFORMATION
  Report Type: 
  Country: None (occurrence: None)
  Receive Date: 20070110
  Receipt Date: 20060828
  Transmission Date: 20070707
  Serious: No
  Sender: FDA-Public Use
  Company Number: US-BRISTOL-MYERS SQUIBB COMPANY-13455787

PATIENT
  Age: 40 Year
  Sex: Female
  Weight: 136 kg

DRUGS (6)
  1. ABILIFY [Suspect]
     Indication: SCHIZOAFFECTIVE DISORDER
     Dosage: REDUCED TO 10 MG DAILY, THEN DISCONTINUED
     Route: 048
  2. SEROQUEL [Concomitant]
  3. HALDOL [Concomitant]
  4. DEPAKOTE [Concomitant]
  5. ATIVAN [Concomitant]
  6. LITHIUM CARBONATE [Concomitant]

REACTIONS (2)
  - HALLUCINATION, AUDITORY [None]
  - INSOMNIA [None]
